FAERS Safety Report 16824932 (Version 5)
Quarter: 2020Q1

REPORT INFORMATION
  Report Type: Spontaneous
  Country: NL (occurrence: NL)
  Receive Date: 20190918
  Receipt Date: 20200106
  Transmission Date: 20200409
  Serious: Yes (Hospitalization, Other)
  Sender: FDA-Public Use
  Company Number: NL-AUROBINDO-AUR-APL-2019-061211

PATIENT
  Age: 54 Year
  Sex: Female
  Weight: 84.5 kg

DRUGS (16)
  1. EPANOVA [Suspect]
     Active Substance: OMEGA-3-CARBOXYLIC ACIDS
     Indication: HYPERTRIGLYCERIDAEMIA
     Dosage: 4 GRAM, ONCE A DAY
     Route: 048
     Dates: start: 20150827, end: 20160630
  2. EPANOVA [Suspect]
     Active Substance: OMEGA-3-CARBOXYLIC ACIDS
     Dosage: 4 GRAM, ONCE A DAY
     Route: 048
     Dates: start: 20161026, end: 20170216
  3. EPANOVA [Suspect]
     Active Substance: OMEGA-3-CARBOXYLIC ACIDS
     Dosage: 4 GRAM, ONCE A DAY
     Route: 048
     Dates: start: 20190920
  4. METFORMIN FILM-COATED TABLET [Suspect]
     Active Substance: METFORMIN HYDROCHLORIDE
     Dosage: 1000 MILLIGRAM, 3 TIMES A DAY (8 HOUR)
     Route: 048
     Dates: start: 20181206, end: 20190701
  5. DAPAGLIFLOZINE [Suspect]
     Active Substance: DAPAGLIFLOZIN
     Indication: DIABETES MELLITUS
     Dosage: 10 MILLIGRAM, ONCE A DAY
     Route: 048
     Dates: start: 20170710, end: 20190701
  6. HYDROCHLOROTHIAZIDE. [Concomitant]
     Active Substance: HYDROCHLOROTHIAZIDE
     Dosage: 13 MILLIGRAM, ONCE A DAY
     Route: 048
     Dates: start: 20160427
  7. METFORMIN FILM-COATED TABLET [Suspect]
     Active Substance: METFORMIN HYDROCHLORIDE
     Dosage: 500 MILLIGRAM, TWO TIMES A DAY (12 HOURS)
     Route: 048
     Dates: start: 20160804, end: 20170406
  8. EPANOVA [Suspect]
     Active Substance: OMEGA-3-CARBOXYLIC ACIDS
     Dosage: 4 GRAM, ONCE A DAY
     Route: 048
     Dates: start: 20170803, end: 20190823
  9. DAPAGLIFLOZINE [Suspect]
     Active Substance: DAPAGLIFLOZIN
     Dosage: 10 MILLIGRAM, ONCE A DAY
     Route: 048
     Dates: start: 20190820, end: 20190824
  10. ATORVASTATIN [Concomitant]
     Active Substance: ATORVASTATIN
     Indication: HYPERCHOLESTEROLAEMIA
     Dosage: 40 MILLIGRAM, ONCE A DAY
     Route: 048
     Dates: start: 201312
  11. METFORMIN FILM-COATED TABLET [Suspect]
     Active Substance: METFORMIN HYDROCHLORIDE
     Indication: DIABETES MELLITUS
     Dosage: 1000 MILLIGRAM, TWO TIMES A DAY (12 HOUR)
     Route: 048
     Dates: start: 2001, end: 20160803
  12. METFORMIN FILM-COATED TABLET [Suspect]
     Active Substance: METFORMIN HYDROCHLORIDE
     Dosage: 500 MILLIGRAM, 3 TIMES A DAY
     Route: 048
     Dates: start: 20170407, end: 20180121
  13. METFORMIN FILM-COATED TABLET [Suspect]
     Active Substance: METFORMIN HYDROCHLORIDE
     Dosage: 1000 MILLIGRAM, TWO TIMES A DAY (12 HOURS)
     Route: 048
     Dates: start: 20180122, end: 20181205
  14. METFORMIN FILM-COATED TABLET [Suspect]
     Active Substance: METFORMIN HYDROCHLORIDE
     Dosage: 1000 MILLIGRAM, 3 TIMES A DAY
     Route: 048
     Dates: start: 20190819, end: 20190824
  15. HYDROCHLOROTHIAZIDE. [Concomitant]
     Active Substance: HYDROCHLOROTHIAZIDE
     Indication: HYPERTENSION
     Dosage: 13 MILLIGRAM, TWO TIMES A DAY
     Route: 048
     Dates: start: 20150715, end: 20160426
  16. EPANOVA [Suspect]
     Active Substance: OMEGA-3-CARBOXYLIC ACIDS
     Dosage: 4 GRAM, ONCE A DAY
     Route: 048
     Dates: start: 20160708, end: 20161005

REACTIONS (2)
  - Ketoacidosis [Recovered/Resolved]
  - Diabetic ketoacidosis [Recovered/Resolved]

NARRATIVE: CASE EVENT DATE: 20190824
